FAERS Safety Report 4273128-7 (Version None)
Quarter: 2004Q1

REPORT INFORMATION
  Report Type: 
  Country: None (occurrence: None)
  Receive Date: 20040116
  Receipt Date: 20020827
  Transmission Date: 20041129
  Serious: Yes (Hospitalization)
  Sender: FDA-Public Use
  Company Number: FR-GLAXOSMITHKLINE-B0278643A

PATIENT
  Age: 31 Year
  Sex: Female

DRUGS (4)
  1. CLAMOXYL [Suspect]
     Indication: VAGINAL INFECTION
     Dosage: 2G SINGLE DOSE
     Route: 042
     Dates: start: 20020621, end: 20020621
  2. SPASMAG [Concomitant]
     Dosage: 1UNIT TWICE PER DAY
     Route: 048
     Dates: start: 20020610, end: 20020620
  3. TARDYFERON B9 [Concomitant]
     Dosage: 1TAB PER DAY
     Route: 048
     Dates: start: 20020601, end: 20020620
  4. DAFLON [Concomitant]
     Dosage: 2TAB PER DAY
     Route: 048
     Dates: start: 20020610, end: 20020620

REACTIONS (3)
  - ANGIONEUROTIC OEDEMA [None]
  - CAESAREAN SECTION [None]
  - UTERINE HYPERTONUS [None]
